FAERS Safety Report 5683365-2 (Version None)
Quarter: 2008Q1

REPORT INFORMATION
  Report Type: 
  Country: None (occurrence: None)
  Receive Date: 20080326
  Receipt Date: 20080317
  Transmission Date: 20080703
  Serious: Yes (Death)
  Sender: FDA-Public Use
  Company Number: 2007EN000147

PATIENT
  Age: 35 Year
  Sex: Female
  Weight: 60.78 kg

DRUGS (12)
  1. OPANA ER [Suspect]
     Indication: PAIN
     Dosage: 20 MG, 2 TABS  BID, PER ORAL
     Route: 048
     Dates: start: 20070407, end: 20070508
  2. OPANA ER [Suspect]
     Indication: PAIN
     Dosage: 20 MG, 2 TABS IN AM, 1 TAB IN PM, PER ORAL
     Route: 048
     Dates: start: 20070509, end: 20070510
  3. OPANA [Suspect]
     Indication: BREAKTHROUGH PAIN
     Dosage: 5 MG, 1 Q12H, PER  ORAL
     Route: 048
     Dates: start: 20070407, end: 20070510
  4. DURAGESIC-100 [Suspect]
     Indication: PAIN
     Dosage: 100 MCG, 1 PATCH EVERY 3 DAYS, TRANSDERMAL
     Route: 062
     Dates: start: 20070401, end: 20070510
  5. VICODIN ES [Suspect]
     Indication: PAIN
     Dosage: 1 TAB 4 TIMES DAILY, PER  ORAL
     Route: 048
     Dates: end: 20070510
  6. AMITRIPTYLINE HCL [Suspect]
     Indication: DRUG USE FOR UNKNOWN INDICATION
     Dosage: 300 MG, 1 TAB QHS, PER ORAL
     Route: 048
     Dates: end: 20070510
  7. ZOLOFT [Suspect]
     Indication: DRUG USE FOR UNKNOWN INDICATION
     Dosage: 100 MG, 1 TAB  DAILY, PER ORAL
     Route: 048
     Dates: end: 20070510
  8. PROVIGIL [Suspect]
     Indication: DRUG USE FOR UNKNOWN INDICATION
     Dosage: 200 MG
     Dates: end: 20070510
  9. LEVOXYL [Suspect]
     Indication: DRUG USE FOR UNKNOWN INDICATION
     Dosage: 2 TABS  DAILY, ORAL
     Route: 048
     Dates: end: 20070510
  10. LUNESTA [Suspect]
     Indication: DRUG USE FOR UNKNOWN INDICATION
     Dosage: 3 MG, 1 TAB QHS, PER ORAL
     Route: 048
     Dates: end: 20070510
  11. KLONOPIN [Suspect]
     Indication: DRUG USE FOR UNKNOWN INDICATION
     Dosage: 2 MG 3 TABS  DAILY, PER ORAL
     Route: 048
     Dates: end: 20070510
  12. ARAVA [Concomitant]

REACTIONS (1)
  - DRUG TOXICITY [None]
